FAERS Safety Report 4946049-1 (Version None)
Quarter: 2006Q1

REPORT INFORMATION
  Report Type: 
  Country: None (occurrence: None)
  Receive Date: 20060118
  Receipt Date: 20050713
  Transmission Date: 20060701
  Serious: Yes (Hospitalization)
  Sender: FDA-Public Use
  Company Number: REM_00133_2005

PATIENT
  Age: 46 Year
  Sex: Female
  Weight: 45 kg

DRUGS (11)
  1. REMODULIN [Suspect]
     Indication: PULMONARY HYPERTENSION
     Dosage: 213 NG/KG/MIN CONTINUOUS IV
     Route: 042
     Dates: start: 20050606, end: 20050712
  2. REMODULIN [Suspect]
     Indication: PULMONARY HYPERTENSION
     Dosage: 147 NG/KG/MIN CONTINUOUS IV
     Route: 042
     Dates: start: 20050713
  3. SYNTHROID [Concomitant]
  4. SUSTIVA [Concomitant]
  5. VIREAD [Concomitant]
  6. TRIZIVIR [Concomitant]
  7. SPIRONOLACTONE [Concomitant]
  8. COUMADIN [Concomitant]
  9. PREDNISONE TAB [Concomitant]
  10. CIPRO [Concomitant]
  11. FLAGYL [Concomitant]

REACTIONS (1)
  - HYPOTENSION [None]
